FAERS Safety Report 5268430-6 (Version None)
Quarter: 2007Q1

REPORT INFORMATION
  Report Type: 
  Country: None (occurrence: None)
  Receive Date: 20070319
  Receipt Date: 20070315
  Transmission Date: 20070707
  Serious: Yes (Other)
  Sender: FDA-Public Use
  Company Number: JP-JPN-A200701107

PATIENT
  Age: 63 Year
  Sex: Female
  Weight: 60 kg

DRUGS (11)
  1. ALKERAN [Suspect]
     Indication: STEM CELL TRANSPLANT
     Route: 042
     Dates: start: 20061016, end: 20061017
  2. BLOOD TRANSFUSION [Suspect]
     Dates: start: 20061024, end: 20061101
  3. FILGRASTIM [Concomitant]
     Dates: start: 20061020, end: 20061030
  4. MAXIPIME [Concomitant]
     Route: 042
     Dates: start: 20061026, end: 20061030
  5. LEVOFLOXACIN [Concomitant]
     Route: 048
     Dates: start: 20061010, end: 20061026
  6. DIFLUCAN [Concomitant]
     Route: 048
     Dates: start: 20061010, end: 20061030
  7. ZANTAC [Concomitant]
     Route: 048
     Dates: start: 20061010
  8. SELBEX [Concomitant]
     Route: 048
     Dates: start: 20061010
  9. BIO THREE [Concomitant]
     Route: 048
     Dates: start: 20061010
  10. LENDORMIN [Concomitant]
     Route: 048
     Dates: start: 20061010
  11. BAKTAR [Concomitant]
     Route: 048
     Dates: start: 20061010, end: 20061213

REACTIONS (1)
  - HEPATITIS B VIRUS [None]
